FAERS Safety Report 6066011-8 (Version None)
Quarter: 2009Q1

REPORT INFORMATION
  Report Type: 
  Country: None (occurrence: None)
  Receive Date: 20090205
  Receipt Date: 20090128
  Transmission Date: 20090719
  Serious: Yes (Hospitalization)
  Sender: FDA-Public Use
  Company Number: IT-ASTRAZENECA-2009SE00567

PATIENT
  Age: 20023 Day
  Sex: Female

DRUGS (2)
  1. NOLVADEX [Suspect]
     Indication: BREAST CANCER
     Route: 048
     Dates: start: 20080304, end: 20090108
  2. ALLOPURINOL [Suspect]
     Indication: HYPERURICAEMIA
     Route: 048
     Dates: start: 20081001, end: 20090108

REACTIONS (4)
  - AUTOIMMUNE NEUTROPENIA [None]
  - AUTOIMMUNE THROMBOCYTOPENIA [None]
  - GINGIVAL BLEEDING [None]
  - PETECHIAE [None]
